FAERS Safety Report 25820368 (Version 1)
Quarter: 2025Q3

REPORT INFORMATION
  Report Type: Other
  Country: TW (occurrence: TW)
  Receive Date: 20250919
  Receipt Date: 20250919
  Transmission Date: 20251020
  Serious: Yes (Death)
  Sender: ANI
  Company Number: TW-ANIPHARMA-030626

PATIENT
  Age: 67 Year
  Sex: Male

DRUGS (15)
  1. CYCLOPHOSPHAMIDE [Suspect]
     Active Substance: CYCLOPHOSPHAMIDE
     Indication: Plasmablastic lymphoma
  2. ETOPOSIDE [Concomitant]
     Active Substance: ETOPOSIDE
     Indication: Plasmablastic lymphoma
  3. PREDNISONE [Concomitant]
     Active Substance: PREDNISONE
     Indication: Plasmablastic lymphoma
  4. VINCRISTINE [Concomitant]
     Active Substance: VINCRISTINE
     Indication: Plasmablastic lymphoma
  5. DOXORUBICIN [Concomitant]
     Active Substance: DOXORUBICIN
     Indication: Plasmablastic lymphoma
  6. METHOTREXATE [Concomitant]
     Active Substance: METHOTREXATE
     Indication: Plasmablastic lymphoma
  7. IFOSFAMIDE [Concomitant]
     Active Substance: IFOSFAMIDE
     Indication: Plasmablastic lymphoma
  8. CYTARABINE [Concomitant]
     Active Substance: CYTARABINE
     Indication: Plasmablastic lymphoma
  9. CARBOPLATIN [Concomitant]
     Active Substance: CARBOPLATIN
     Indication: Plasmablastic lymphoma
  10. DOXORUBICIN [Concomitant]
     Active Substance: DOXORUBICIN
     Indication: Plasmablastic lymphoma
  11. IFOSFAMIDE [Concomitant]
     Active Substance: IFOSFAMIDE
     Indication: Plasmablastic lymphoma
  12. ETOPOSIDE [Concomitant]
     Active Substance: ETOPOSIDE
     Indication: Plasmablastic lymphoma
  13. ETOPOSIDE [Concomitant]
     Active Substance: ETOPOSIDE
     Indication: Plasmablastic lymphoma
  14. CYCLOPHOSPHAMIDE [Suspect]
     Active Substance: CYCLOPHOSPHAMIDE
     Indication: Plasmablastic lymphoma
  15. VINCRISTINE [Concomitant]
     Active Substance: VINCRISTINE
     Indication: Plasmablastic lymphoma

REACTIONS (1)
  - Drug ineffective [Fatal]
